FAERS Safety Report 5419215-9 (Version None)
Quarter: 2007Q3

REPORT INFORMATION
  Report Type: 
  Country: None (occurrence: None)
  Receive Date: 20070817
  Receipt Date: 20070817
  Transmission Date: 20080115
  Serious: No
  Sender: FDA-Public Use
  Company Number: None

PATIENT
  Age: 60 Year
  Sex: Female

DRUGS (1)
  1. OPTIRAY 350 [Suspect]
     Indication: LYMPHADENOPATHY
     Dosage: 100CC 2CC/SEC LTAC

REACTIONS (3)
  - CHEST DISCOMFORT [None]
  - SNEEZING [None]
  - URTICARIA [None]
